FAERS Safety Report 4279688-4 (Version None)
Quarter: 2004Q1

REPORT INFORMATION
  Report Type: 
  Country: None (occurrence: None)
  Receive Date: 20040123
  Receipt Date: 20040119
  Transmission Date: 20041129
  Serious: Yes (Hospitalization)
  Sender: FDA-Public Use
  Company Number: TUK2004A00006

PATIENT
  Age: 55 Year
  Sex: Male

DRUGS (3)
  1. ACTOS [Suspect]
     Indication: DIABETES MELLITUS
     Dosage: 30 MG
     Route: 048
     Dates: start: 20020704, end: 20031201
  2. TADALAFIL (TADALAFIL) [Concomitant]
  3. GLYBURIDE [Concomitant]

REACTIONS (3)
  - HAEMATOSPERMIA [None]
  - HAEMATURIA [None]
  - RADIOTHERAPY [None]
